FAERS Safety Report 11771476 (Version 1)
Quarter: 2015Q4

REPORT INFORMATION
  Report Type: Spontaneous
  Country: US (occurrence: None)
  Receive Date: 20151123
  Receipt Date: 20151123
  Transmission Date: 20160304
  Serious: Yes (Other)
  Sender: FDA-Public Use
  Company Number: None

PATIENT
  Age: 27 Year
  Sex: Male
  Weight: 55.34 kg

DRUGS (17)
  1. MIRALAX [Concomitant]
     Active Substance: POLYETHYLENE GLYCOL 3350
  2. LEVO CARNITINE [Concomitant]
  3. MUPIROCIN OINTMENT [Concomitant]
     Active Substance: MUPIROCIN
  4. VITAMIN D [Concomitant]
     Active Substance: CHOLECALCIFEROL
  5. LAMOTRIGINE. [Concomitant]
     Active Substance: LAMOTRIGINE
  6. OLANZIPINE [Concomitant]
     Active Substance: OLANZAPINE
  7. CITRAMINS II [Concomitant]
  8. KEPPRA [Concomitant]
     Active Substance: LEVETIRACETAM
  9. DIAZEPAM. [Concomitant]
     Active Substance: DIAZEPAM
  10. VITAMIN C PRIMAL DEFENSE (PROBIOTIC) [Concomitant]
  11. LAMOTRIGINE. [Suspect]
     Active Substance: LAMOTRIGINE
     Indication: GENERALISED TONIC-CLONIC SEIZURE
     Dosage: 100 MG BID (WITH 200 MG TAB)
     Route: 048
     Dates: start: 20151111, end: 20151121
  12. CHLORHEXIDINE GLUCONATE ORAL RINSE [Concomitant]
     Active Substance: CHLORHEXIDINE GLUCONATE
  13. KETOCONAZOLE SHAMPOO [Concomitant]
     Active Substance: KETOCONAZOLE
  14. CALMAG [Concomitant]
  15. VITAMIN B COMPLEX [Concomitant]
     Active Substance: CYANOCOBALAMIN\DEXPANTHENOL\NIACINAMIDE\PYRIDOXINE HYDROCHLORIDE\RIBOFLAVIN 5^-PHOSPHATE SODIUM\THIAMINE HYDROCHLORIDE\VITAMIN B COMPLEX
  16. FLUOXETINE [Concomitant]
     Active Substance: FLUOXETINE HYDROCHLORIDE
  17. SEDATION [Concomitant]

REACTIONS (2)
  - Generalised tonic-clonic seizure [None]
  - Product quality issue [None]

NARRATIVE: CASE EVENT DATE: 20151116
